FAERS Safety Report 7153316-2 (Version None)
Quarter: 2010Q4

REPORT INFORMATION
  Report Type: 
  Country: None (occurrence: None)
  Receive Date: 20101213
  Receipt Date: 20101203
  Transmission Date: 20110411
  Serious: Yes (Other)
  Sender: FDA-Public Use
  Company Number: US-ROCHE-746563

PATIENT
  Sex: Female

DRUGS (1)
  1. NAPROSYN [Suspect]
     Indication: PAIN
     Route: 065
     Dates: start: 19820101, end: 19840101

REACTIONS (5)
  - AUTOIMMUNE NEUROPATHY [None]
  - CYTOMEGALOVIRUS GASTROINTESTINAL INFECTION [None]
  - GASTRITIS [None]
  - HIATUS HERNIA [None]
  - PYREXIA [None]
